FAERS Safety Report 6943325-8 (Version None)
Quarter: 2010Q3

REPORT INFORMATION
  Report Type: 
  Country: None (occurrence: None)
  Receive Date: 20100826
  Receipt Date: 20100817
  Transmission Date: 20110219
  Serious: Yes (Hospitalization, Other)
  Sender: FDA-Public Use
  Company Number: US-PFIZER INC-2010065354

PATIENT
  Sex: Female

DRUGS (4)
  1. DILANTIN-125 [Suspect]
     Indication: CONVULSION
     Dosage: 100 MG, 3X/DAY
     Route: 048
     Dates: start: 20100406
  2. COPAXONE [Suspect]
     Indication: MULTIPLE SCLEROSIS
     Dosage: 20 MG, UNK
     Route: 058
     Dates: start: 20100406, end: 20100428
  3. TOPAMAX [Concomitant]
     Dosage: 100 MG, 2X/DAY
  4. LAMICTAL [Concomitant]
     Dosage: 225 MG, 2X/DAY

REACTIONS (4)
  - CONVULSION [None]
  - DRUG TOXICITY [None]
  - LETHARGY [None]
  - VERTIGO [None]
